FAERS Safety Report 8170043-3 (Version None)
Quarter: 2012Q1

REPORT INFORMATION
  Report Type: 
  Country: None (occurrence: None)
  Receive Date: 20120104
  Receipt Date: 20111121
  Transmission Date: 20120608
  Serious: No
  Sender: FDA-Public Use
  Company Number: 2011HGS-002850

PATIENT
  Age: 26 Year
  Sex: Female
  Weight: 90.7194 kg

DRUGS (9)
  1. NORVASC [Suspect]
  2. BENLYSTA [Suspect]
     Indication: SYSTEMIC LUPUS ERYTHEMATOSUS
     Dosage: 10 MG/KG, 1 IN 28 D, INTRAVENOUS DRIP
     Route: 041
     Dates: start: 20110627
  3. IMURAN [Suspect]
  4. MOTRIN [Suspect]
     Dosage: 600 MG, AS NEEDED
  5. ABILIFY [Suspect]
  6. CELLCEPT [Suspect]
  7. PREDNISONE [Concomitant]
  8. PLAQUENIL (HYDROXYCHLOROQUINE SULFATE) (HYDROXYCHLOROQUINE SULFATE) [Concomitant]
  9. FLEXERIL (CYCLOBENZAPRINE HYDROCHLORIDE) (CYCLOBENZAPRINE HYDROCHLORID [Concomitant]

REACTIONS (6)
  - OROPHARYNGEAL PAIN [None]
  - CHEST PAIN [None]
  - DYSPNOEA [None]
  - PRODUCTIVE COUGH [None]
  - DYSPHAGIA [None]
  - DRY MOUTH [None]
